FAERS Safety Report 7492015-4 (Version None)
Quarter: 2011Q2

REPORT INFORMATION
  Report Type: 
  Country: None (occurrence: None)
  Receive Date: 20110519
  Receipt Date: 20110509
  Transmission Date: 20111010
  Serious: Yes (Other)
  Sender: FDA-Public Use
  Company Number: FR-ASTRAZENECA-2011SE27581

PATIENT
  Sex: Female

DRUGS (1)
  1. ARIMIDEX [Suspect]
     Indication: BREAST CANCER
     Route: 048
     Dates: start: 20060530

REACTIONS (4)
  - ARRHYTHMIA [None]
  - BRAIN NEOPLASM [None]
  - UPPER LIMB FRACTURE [None]
  - CEREBRAL HAEMORRHAGE [None]
